FAERS Safety Report 11327861 (Version 5)
Quarter: 2015Q4

REPORT INFORMATION
  Report Type: Report from Study
  Country: DE (occurrence: DE)
  Receive Date: 20150731
  Receipt Date: 20151105
  Transmission Date: 20160304
  Serious: Yes (Hospitalization)
  Sender: FDA-Public Use
  Company Number: DE-ABBVIE-15P-062-1427400-00

PATIENT
  Age: 65 Year
  Sex: Female
  Weight: 73.3 kg

DRUGS (13)
  1. FRESUBIN [Concomitant]
     Active Substance: AMINO ACIDS\DEXTROSE\ELECTROLYTES NOS\SOYBEAN OIL\VITAMINS
     Indication: HEPATIC CIRRHOSIS
     Route: 048
     Dates: start: 201505
  2. SPIRONOLACTON [Concomitant]
     Active Substance: SPIRONOLACTONE
     Route: 048
     Dates: start: 20150706, end: 20150819
  3. TOREM [Concomitant]
     Active Substance: TORSEMIDE
     Indication: HEPATIC CIRRHOSIS
     Route: 048
     Dates: start: 201505, end: 20150705
  4. DEXAMETHASON [Concomitant]
     Active Substance: DEXAMETHASONE
     Indication: BACK PAIN
     Route: 030
     Dates: start: 20150705, end: 20150705
  5. NOVALGIN [Concomitant]
     Active Substance: METAMIZOLE SODIUM
     Indication: BACK PAIN
     Route: 048
     Dates: start: 20150705, end: 20150706
  6. L-THYROXIN [Concomitant]
     Active Substance: LEVOTHYROXINE SODIUM
     Indication: HYPOTHYROIDISM
     Route: 048
     Dates: start: 201505
  7. PANTOZOL [Concomitant]
     Active Substance: PANTOPRAZOLE SODIUM
     Indication: HEPATIC CIRRHOSIS
     Route: 048
     Dates: start: 201505
  8. TAVOR [Concomitant]
     Active Substance: LORAZEPAM
     Indication: RESTLESS LEGS SYNDROME
     Route: 048
     Dates: start: 20150705, end: 20150705
  9. RIBAVIRIN. [Suspect]
     Active Substance: RIBAVIRIN
     Indication: HEPATITIS C
     Dosage: DIVIDED DOSES DAILY: BASELINE TOTAL DAILY DOSE 1000MG
     Route: 048
     Dates: start: 20150706
  10. FENISTIL [Concomitant]
     Active Substance: DIMETHINDENE
     Indication: HEPATIC CIRRHOSIS
     Route: 048
     Dates: start: 201506, end: 20150710
  11. OMBITASVIR/PARITAPREVIR/RITONAVIR [Suspect]
     Active Substance: OMBITASVIR\PARITAPREVIR\RITONAVIR
     Indication: HEPATITIS C
     Dosage: 150/100/25 MG IN 1D
     Route: 048
     Dates: start: 20150706
  12. TOREM [Concomitant]
     Active Substance: TORSEMIDE
     Route: 048
     Dates: start: 20150706, end: 20150827
  13. SPIRONOLACTON [Concomitant]
     Active Substance: SPIRONOLACTONE
     Indication: HEPATIC CIRRHOSIS
     Route: 048
     Dates: start: 201505, end: 20150705

REACTIONS (5)
  - General physical health deterioration [Recovered/Resolved]
  - Diarrhoea [Recovered/Resolved]
  - Hyperbilirubinaemia [Recovered/Resolved]
  - Accidental overdose [Recovered/Resolved]
  - Dehydration [Recovered/Resolved]

NARRATIVE: CASE EVENT DATE: 20150707
